FAERS Safety Report 11745114 (Version 1)
Quarter: 2015Q4

REPORT INFORMATION
  Report Type: Report from Study
  Country: US (occurrence: US)
  Receive Date: 20151117
  Receipt Date: 20151117
  Transmission Date: 20160304
  Serious: Yes (Hospitalization, Other)
  Sender: FDA-Public Use
  Company Number: US-BAYER-2014-048017

PATIENT
  Age: 65 Year
  Sex: Female
  Weight: 104.31 kg

DRUGS (8)
  1. LASIX [Concomitant]
     Active Substance: FUROSEMIDE
  2. ADEMPAS [Suspect]
     Active Substance: RIOCIGUAT
     Indication: PULMONARY ARTERIAL HYPERTENSION
     Dosage: 0.5 MG, TID
     Route: 048
     Dates: start: 20140320
  3. ADEMPAS [Suspect]
     Active Substance: RIOCIGUAT
     Indication: PULMONARY ARTERIAL HYPERTENSION
     Dosage: 1 MG, TID
     Route: 048
  4. ASPIRIN. [Concomitant]
     Active Substance: ASPIRIN
  5. PHENERGAN [Concomitant]
     Active Substance: PROMETHAZINE HYDROCHLORIDE
  6. ADEMPAS [Suspect]
     Active Substance: RIOCIGUAT
     Indication: PULMONARY ARTERIAL HYPERTENSION
     Dosage: 1 MG, TID
     Route: 048
     Dates: start: 20140321
  7. DILAUDID [Concomitant]
     Active Substance: HYDROMORPHONE HYDROCHLORIDE
  8. POTASSIUM [Concomitant]
     Active Substance: POTASSIUM

REACTIONS (29)
  - Gallbladder operation [None]
  - Bronchitis [None]
  - Anosmia [None]
  - Contusion [None]
  - Vertigo [Unknown]
  - Splenectomy [Unknown]
  - Hypotension [Recovering/Resolving]
  - Weight decreased [None]
  - Epistaxis [Unknown]
  - Thrombocytopenia [Unknown]
  - Platelet count decreased [Unknown]
  - Dyspepsia [Unknown]
  - Contusion [Unknown]
  - Cholelithiasis [Unknown]
  - Headache [Not Recovered/Not Resolved]
  - Pain [Unknown]
  - Oral mucosal blistering [Unknown]
  - Nausea [Unknown]
  - Arthralgia [None]
  - Dizziness [Unknown]
  - Petechiae [Unknown]
  - Biliary colic [Unknown]
  - Constipation [Unknown]
  - Dizziness [None]
  - Ageusia [None]
  - Haemorrhagic diathesis [None]
  - Surgery [Unknown]
  - Blood pressure decreased [Recovering/Resolving]
  - Migraine [Unknown]

NARRATIVE: CASE EVENT DATE: 20141108
